FAERS Safety Report 10737850 (Version 1)
Quarter: 2015Q1

REPORT INFORMATION
  Report Type: Spontaneous
  Country: US (occurrence: US)
  Receive Date: 20150126
  Receipt Date: 20150126
  Transmission Date: 20150721
  Serious: Yes (Hospitalization, Disabling, Other)
  Sender: FDA-Public Use
  Company Number: US-SA-2014SA036933

PATIENT
  Age: 77 Year
  Sex: Male
  Weight: 68.93 kg

DRUGS (22)
  1. NAPROSYN [Concomitant]
     Active Substance: NAPROXEN
     Dates: end: 20131202
  2. IRON [Concomitant]
     Active Substance: IRON
     Dates: end: 20131202
  3. OMEPRAZOLE. [Concomitant]
     Active Substance: OMEPRAZOLE
  4. HYDROCODONE [Concomitant]
     Active Substance: HYDROCODONE
  5. LASIX [Suspect]
     Active Substance: FUROSEMIDE
     Indication: PRODUCT USED FOR UNKNOWN INDICATION
     Route: 065
  6. COUMADIN [Concomitant]
     Active Substance: WARFARIN SODIUM
  7. GLIPIZIDE. [Concomitant]
     Active Substance: GLIPIZIDE
     Dates: end: 20131202
  8. BUPROPION [Concomitant]
     Active Substance: BUPROPION
  9. ISMO [Concomitant]
     Active Substance: ISOSORBIDE MONONITRATE
  10. ASPIRIN. [Concomitant]
     Active Substance: ASPIRIN
  11. TERAZOSIN [Concomitant]
     Active Substance: TERAZOSIN\TERAZOSIN HYDROCHLORIDE
     Dates: end: 20131202
  12. VALSARTAN. [Concomitant]
     Active Substance: VALSARTAN
  13. AMMONIUM LACTATE. [Concomitant]
     Active Substance: AMMONIUM LACTATE
  14. IPRATROPIUM [Concomitant]
     Active Substance: IPRATROPIUM
     Dates: end: 20140319
  15. NITROGLYCERIN ^SLOVAKOFARMA^ [Concomitant]
  16. LOVENOX [Concomitant]
     Active Substance: ENOXAPARIN SODIUM
     Dates: start: 20131202
  17. FUROSEMIDE. [Concomitant]
     Active Substance: FUROSEMIDE
  18. CITALOPRAM [Concomitant]
     Active Substance: CITALOPRAM HYDROBROMIDE
  19. PRAVASTATIN [Concomitant]
     Active Substance: PRAVASTATIN\PRAVASTATIN SODIUM
  20. TRAMADOL [Concomitant]
     Active Substance: TRAMADOL
  21. BUDESONIDE. [Concomitant]
     Active Substance: BUDESONIDE
  22. METOPROLOL [Concomitant]
     Active Substance: METOPROLOL

REACTIONS (1)
  - Hypokalaemia [Not Recovered/Not Resolved]

NARRATIVE: CASE EVENT DATE: 20131207
